FAERS Safety Report 21607635 (Version 1)
Quarter: 2022Q4

REPORT INFORMATION
  Report Type: Spontaneous
  Country: US (occurrence: None)
  Receive Date: 20221117
  Receipt Date: 20221117
  Transmission Date: 20230113
  Serious: Yes (Hospitalization)
  Sender: FDA-Public Use
  Company Number: 2022A375023

PATIENT
  Sex: Female

DRUGS (1)
  1. SYMBICORT [Suspect]
     Active Substance: BUDESONIDE\FORMOTEROL FUMARATE DIHYDRATE
     Dosage: 160/4.5MCG 1 PUFF TWICE A DAY
     Route: 055

REACTIONS (5)
  - Blood sodium decreased [Unknown]
  - Fatigue [Unknown]
  - Asthma [Unknown]
  - Intentional product misuse [Unknown]
  - Device malfunction [Unknown]
